FAERS Safety Report 7744119-6 (Version None)
Quarter: 2011Q3

REPORT INFORMATION
  Report Type: 
  Country: None (occurrence: None)
  Receive Date: 20110912
  Receipt Date: 20110901
  Transmission Date: 20111222
  Serious: Yes (Other)
  Sender: FDA-Public Use
  Company Number: US-JNJFOC-20110902499

PATIENT
  Age: 65 Year
  Sex: Female

DRUGS (4)
  1. TYLENOL-500 [Suspect]
     Route: 048
  2. TYLENOL-500 [Suspect]
     Indication: MIGRAINE
     Dosage: 10-15 YEARS
     Route: 048
  3. LIPITOR [Concomitant]
     Indication: BLOOD CHOLESTEROL INCREASED
     Route: 065
  4. LEVOTHYROXINE SODIUM [Concomitant]
     Indication: HYPOTHYROIDISM
     Route: 065

REACTIONS (4)
  - HEADACHE [None]
  - SYNCOPE [None]
  - ASTHENIA [None]
  - EXPIRED DRUG ADMINISTERED [None]
